FAERS Safety Report 12480594 (Version 5)
Quarter: 2016Q3

REPORT INFORMATION
  Report Type: Spontaneous
  Country: JP (occurrence: JP)
  Receive Date: 20160620
  Receipt Date: 20160926
  Transmission Date: 20161109
  Serious: Yes (Death, Life-Threatening, Hospitalization, Other)
  Sender: FDA-Public Use
  Company Number: JP-GLAXOSMITHKLINE-JP2016JPN085120

PATIENT
  Age: 89 Year
  Sex: Male
  Weight: 49 kg

DRUGS (5)
  1. ALOSENN [Concomitant]
     Active Substance: SENNA LEAF
     Dosage: UNK
  2. THYRADIN [Concomitant]
     Active Substance: LEVOTHYROXINE
     Dosage: UNK
  3. AMITIZA [Concomitant]
     Active Substance: LUBIPROSTONE
     Dosage: UNK
  4. ZOVIRAX [Suspect]
     Active Substance: ACYCLOVIR
     Indication: HERPES ZOSTER
     Dosage: 800 MG, QID
     Route: 048
     Dates: start: 20160611, end: 20160613
  5. ASPIRIN. [Concomitant]
     Active Substance: ASPIRIN
     Dosage: UNK

REACTIONS (14)
  - Toxic encephalopathy [Not Recovered/Not Resolved]
  - Somnolence [Not Recovered/Not Resolved]
  - Hypophagia [Unknown]
  - Speech disorder [Recovering/Resolving]
  - General physical health deterioration [Fatal]
  - Depressed level of consciousness [Recovering/Resolving]
  - Condition aggravated [Unknown]
  - Unresponsive to stimuli [Not Recovered/Not Resolved]
  - Disuse syndrome [Unknown]
  - Hypopnoea [Not Recovered/Not Resolved]
  - Prescribed overdose [Unknown]
  - Blood albumin decreased [Unknown]
  - Blood pressure systolic decreased [Not Recovered/Not Resolved]
  - Drug prescribing error [Unknown]

NARRATIVE: CASE EVENT DATE: 2016
